FAERS Safety Report 23582556 (Version 1)
Quarter: 2024Q1

REPORT INFORMATION
  Report Type: Spontaneous
  Country: US (occurrence: US)
  Receive Date: 20240229
  Receipt Date: 20240229
  Transmission Date: 20240410
  Serious: Yes (Other)
  Sender: FDA-Public Use
  Company Number: US-JNJFOC-20240261462

PATIENT
  Age: 14 Year
  Sex: Female
  Weight: 36.32 kg

DRUGS (2)
  1. REMICADE [Suspect]
     Active Substance: INFLIXIMAB
     Indication: Crohn^s disease
     Route: 041
     Dates: start: 2023, end: 202312
  2. REMICADE [Suspect]
     Active Substance: INFLIXIMAB
     Indication: Arthritis

REACTIONS (3)
  - Crohn^s disease [Unknown]
  - Drug specific antibody present [Unknown]
  - Arthritis [Unknown]

NARRATIVE: CASE EVENT DATE: 20240101
